FAERS Safety Report 4990291-0 (Version None)
Quarter: 2006Q2

REPORT INFORMATION
  Report Type: 
  Country: None (occurrence: None)
  Receive Date: 20060427
  Receipt Date: 20060419
  Transmission Date: 20061013
  Serious: Yes (Life-Threatening)
  Sender: FDA-Public Use
  Company Number: IT-2006-003451

PATIENT
  Age: 86 Year
  Sex: Female

DRUGS (7)
  1. SOTALOL HYDROCHLORIDE [Suspect]
     Indication: ARRHYTHMIA
     Dosage: ORAL
     Route: 048
     Dates: start: 20050101, end: 20060204
  2. RYTMONORM (PROPAFENONE HYDROCHLORIDE) [Suspect]
     Indication: ATRIAL FIBRILLATION
     Dosage: 70 MG, 1 DOSE, INTRAVENOUS
     Route: 042
     Dates: start: 20060204, end: 20060204
  3. VALSARTAN [Concomitant]
  4. LASIX [Concomitant]
  5. ALDACTONE [Concomitant]
  6. ROCEPHIN [Concomitant]
  7. POTASSION [Concomitant]

REACTIONS (1)
  - VENTRICULAR ASYSTOLE [None]
